FAERS Safety Report 11858962 (Version 1)
Quarter: 2015Q4

REPORT INFORMATION
  Report Type: Spontaneous
  Country: US (occurrence: US)
  Receive Date: 20151222
  Receipt Date: 20151222
  Transmission Date: 20160305
  Serious: No
  Sender: FDA-Public Use
  Company Number: US-HORIZON-DUE-0118-2015

PATIENT
  Age: 55 Year
  Sex: Male

DRUGS (2)
  1. RAYOS [Concomitant]
     Active Substance: PREDNISONE
     Dosage: 5 MG TWICE DAILY
  2. DUEXIS [Suspect]
     Active Substance: FAMOTIDINE\IBUPROFEN

REACTIONS (2)
  - Insomnia [Unknown]
  - Adverse event [Unknown]

NARRATIVE: CASE EVENT DATE: 20151215
